FAERS Safety Report 5956669-3 (Version None)
Quarter: 2008Q4

REPORT INFORMATION
  Report Type: 
  Country: None (occurrence: None)
  Receive Date: 20081118
  Receipt Date: 20081110
  Transmission Date: 20090506
  Serious: Yes (Hospitalization, Other)
  Sender: FDA-Public Use
  Company Number: US-ABBOTT-08P-163-0486902-00

PATIENT
  Sex: Female
  Weight: 53.572 kg

DRUGS (8)
  1. HUMIRA [Suspect]
     Indication: RHEUMATOID ARTHRITIS
     Dosage: THE PATIENT HELD THE DOSAGE IN
     Route: 058
     Dates: start: 20030201, end: 20080901
  2. HUMIRA [Suspect]
     Dates: end: 20081026
  3. FOLIC ACID [Concomitant]
     Indication: RHEUMATOID ARTHRITIS
  4. CYANOCOBALAMIN-TANNIN COMPLEX [Concomitant]
     Indication: RHEUMATOID ARTHRITIS
  5. DILTIAZEM HCL [Concomitant]
     Indication: HYPERTENSION
  6. ACETAMINOPHEN [Concomitant]
     Indication: PAIN
  7. HYDROCODONE BITARTRATE [Concomitant]
     Indication: PAIN
  8. ALENDRONATE SODIUM [Concomitant]
     Indication: RHEUMATOID ARTHRITIS

REACTIONS (11)
  - APHONIA [None]
  - BLOOD PRESSURE INCREASED [None]
  - BODY TEMPERATURE INCREASED [None]
  - CHRONIC OBSTRUCTIVE PULMONARY DISEASE [None]
  - CORONARY ARTERY OCCLUSION [None]
  - DRUG INEFFECTIVE [None]
  - DYSPEPSIA [None]
  - EMPHYSEMA [None]
  - PRODUCTIVE COUGH [None]
  - SENSATION OF FOREIGN BODY [None]
  - SPUTUM DISCOLOURED [None]
